FAERS Safety Report 8576806-4 (Version None)
Quarter: 2012Q3

REPORT INFORMATION
  Report Type: 
  Country: None (occurrence: None)
  Receive Date: 20120807
  Receipt Date: 20120803
  Transmission Date: 20120928
  Serious: Yes (Hospitalization)
  Sender: FDA-Public Use
  Company Number: US-AMGEN-US335940

PATIENT
  Age: 46 Year
  Sex: Male

DRUGS (10)
  1. CINACALCET HYDROCHLORIDE [Suspect]
     Indication: HYPERPARATHYROIDISM SECONDARY
     Dosage: UNK UNK, UNK
     Dates: start: 20070530
  2. ONDANSETRON HYDROCHLORIDE [Concomitant]
     Dosage: 4 MG, UNK
     Route: 048
  3. SILDENAFIL CITRATE [Concomitant]
  4. METOPROLOL TARTRATE [Concomitant]
     Dosage: 50 MG, BID
  5. RANITIDINE [Concomitant]
     Dosage: 150 MG, QD
  6. SIMVASTATIN [Concomitant]
     Dosage: 10 MG, QD
  7. ALUMINIUM HYDROXIDE GEL [Concomitant]
  8. NIFEDIPINE [Concomitant]
     Dosage: 90 MG, QD
  9. RENAGEL [Concomitant]
     Dosage: 160 MG, TID
     Route: 048
     Dates: start: 20061213
  10. LISINOPRIL [Concomitant]
     Dosage: 20 MG, QD

REACTIONS (3)
  - PLEURAL EFFUSION [None]
  - HYPERPHOSPHATAEMIA [None]
  - GASTROENTERITIS [None]
